FAERS Safety Report 13230399 (Version 1)
Quarter: 2017Q1

REPORT INFORMATION
  Report Type: Spontaneous
  Country: US (occurrence: US)
  Receive Date: 20170214
  Receipt Date: 20170214
  Transmission Date: 20170428
  Serious: Yes (Life-Threatening, Hospitalization, Other)
  Sender: FDA-Public Use
  Company Number: None

PATIENT
  Age: 29 Year
  Sex: Male
  Weight: 97 kg

DRUGS (9)
  1. OLANZAPINE. [Concomitant]
     Active Substance: OLANZAPINE
  2. ONDANSETRON [Concomitant]
     Active Substance: ONDANSETRON
  3. OXALIPLATIN. [Concomitant]
     Active Substance: OXALIPLATIN
  4. VENLAFAXINE [Concomitant]
     Active Substance: VENLAFAXINE HYDROCHLORIDE
  5. CAPECITABINE. [Suspect]
     Active Substance: CAPECITABINE
     Indication: COLON CANCER
     Dosage: ?          OTHER FREQUENCY:Q12H;?
     Route: 048
     Dates: start: 20161103, end: 20170208
  6. LORAZEPAM. [Concomitant]
     Active Substance: LORAZEPAM
  7. IBUPROFEN. [Concomitant]
     Active Substance: IBUPROFEN
  8. DEXAMETHASONE. [Concomitant]
     Active Substance: DEXAMETHASONE
  9. MULTIVITAMIN [Concomitant]
     Active Substance: VITAMINS

REACTIONS (10)
  - Hereditary non-polyposis colorectal cancer syndrome [None]
  - Dizziness [None]
  - Hypokalaemia [None]
  - Sinus tachycardia [None]
  - Cardiac arrest [None]
  - Respiratory arrest [None]
  - Left atrial dilatation [None]
  - Nausea [None]
  - Dyspnoea exertional [None]
  - Unresponsive to stimuli [None]

NARRATIVE: CASE EVENT DATE: 20170208
